FAERS Safety Report 6762591-5 (Version None)
Quarter: 2010Q2

REPORT INFORMATION
  Report Type: 
  Country: None (occurrence: None)
  Receive Date: 20100609
  Receipt Date: 20100525
  Transmission Date: 20101027
  Serious: Yes (Hospitalization, Other)
  Sender: FDA-Public Use
  Company Number: US-BAYER-201022966NA

PATIENT
  Age: 20 Year
  Sex: Female

DRUGS (3)
  1. YASMIN [Suspect]
     Indication: CONTRACEPTION
     Route: 048
     Dates: start: 20050501, end: 20071101
  2. YAZ [Suspect]
     Indication: CONTRACEPTION
     Route: 048
     Dates: start: 20050501, end: 20071101
  3. OCELLA [Suspect]
     Indication: CONTRACEPTION
     Route: 065
     Dates: start: 20050501, end: 20071101

REACTIONS (3)
  - CHOLELITHIASIS [None]
  - DYSPNOEA [None]
  - VOMITING [None]
